FAERS Safety Report 7110542-6 (Version None)
Quarter: 2010Q4

REPORT INFORMATION
  Report Type: 
  Country: None (occurrence: None)
  Receive Date: 20101118
  Receipt Date: 20101108
  Transmission Date: 20110411
  Serious: Yes (Life-Threatening, Hospitalization, Other)
  Sender: FDA-Public Use
  Company Number: US-ROCHE-716509

PATIENT
  Sex: Female
  Weight: 83 kg

DRUGS (7)
  1. PEGASYS [Suspect]
     Indication: HEPATITIS C
     Dosage: FORM: INJECTION
     Route: 058
     Dates: start: 20100123, end: 20100624
  2. COPEGUS [Suspect]
     Indication: HEPATITIS C
     Route: 048
     Dates: start: 20100123, end: 20100624
  3. TRAMADOL HCL [Concomitant]
     Indication: PAIN
     Route: 048
  4. ASPIRIN [Concomitant]
     Route: 048
  5. OMEPRAZOLE [Concomitant]
     Route: 048
  6. ZANTAC [Concomitant]
  7. WELLBUTRIN [Concomitant]
     Indication: DEPRESSION

REACTIONS (4)
  - ACUTE MYOCARDIAL INFARCTION [None]
  - ARTERIOSCLEROSIS [None]
  - BLOOD CHOLESTEROL ABNORMAL [None]
  - STRESS CARDIOMYOPATHY [None]
